FAERS Safety Report 4556088-0 (Version None)
Quarter: 2005Q1

REPORT INFORMATION
  Report Type: 
  Country: None (occurrence: None)
  Receive Date: 20050114
  Receipt Date: 20050111
  Transmission Date: 20050727
  Serious: Yes (Hospitalization)
  Sender: FDA-Public Use
  Company Number: 2003174472DE

PATIENT
  Age: 65 Year
  Sex: Male
  Weight: 90 kg

DRUGS (3)
  1. BEXTRA [Suspect]
     Indication: ARTHRALGIA
     Dosage: 20 MG (20 MG, 1 IN 1 D), ORAL
     Route: 048
     Dates: start: 20030819, end: 20030827
  2. TORSEMIDE [Concomitant]
  3. TRANDOLAPRIL (TRANDOLAPRIL) [Concomitant]

REACTIONS (14)
  - ABDOMINAL PAIN [None]
  - DRUG ERUPTION [None]
  - DYSPHAGIA [None]
  - DYSPNOEA [None]
  - ERYTHEMA MULTIFORME [None]
  - EXANTHEM [None]
  - EYE SWELLING [None]
  - FACE OEDEMA [None]
  - HAEMORRHAGE [None]
  - PRURITUS [None]
  - RASH MACULO-PAPULAR [None]
  - SKIN DISCOLOURATION [None]
  - URTICARIA [None]
  - VASCULITIS [None]
